FAERS Safety Report 9458703 (Version 1)
Quarter: 2013Q3

REPORT INFORMATION
  Report Type: Spontaneous
  Country: US (occurrence: US)
  Receive Date: 20130814
  Receipt Date: 20130814
  Transmission Date: 20140515
  Serious: Yes (Other)
  Sender: FDA-Public Use
  Company Number: US-TEVA-426130USA

PATIENT
  Age: 24 Year
  Sex: Female
  Weight: 58.11 kg

DRUGS (3)
  1. PARAGARD 380A [Suspect]
     Indication: CONTRACEPTION
     Route: 015
     Dates: start: 20130619, end: 20130724
  2. GAVISCON [Concomitant]
  3. TIROSINT [Concomitant]
     Indication: HYPOTHYROIDISM

REACTIONS (2)
  - Device dislocation [Recovered/Resolved]
  - Pain [Recovered/Resolved]
